FAERS Safety Report 5156777-3 (Version None)
Quarter: 2006Q4

REPORT INFORMATION
  Report Type: 
  Country: None (occurrence: None)
  Receive Date: 20061115
  Receipt Date: 20061031
  Transmission Date: 20070319
  Serious: Yes (Death)
  Sender: FDA-Public Use
  Company Number: E3810-00396-SPO-BR

PATIENT
  Age: 26 Year
  Sex: Female
  Weight: 62 kg

DRUGS (11)
  1. RABEPRAZOLE SODIUM [Suspect]
     Indication: GASTRIC DISORDER
     Dosage: 20 MG, 1 IN 1 D, ORAL
     Route: 048
     Dates: start: 20061023
  2. CHLORTALIDONE (CHLORTALIDONEE) [Concomitant]
  3. DIGOXIN [Concomitant]
  4. RANITIDINE [Concomitant]
  5. FUROSEMIDE [Concomitant]
  6. PLASIL (METOCLOPRAMIDE HYDROCHLORIDE) [Concomitant]
  7. DRAMIN (DIMENHYDRINATE) [Concomitant]
  8. SUPERAN (ALIZAPRIDE HYDROCHLORIDE) [Concomitant]
  9. SPIROLACTONE (SPIRONOLACTONE) [Concomitant]
  10. COUMADIN [Concomitant]
  11. SITAXSENTAN [Concomitant]

REACTIONS (1)
  - PULMONARY HYPERTENSION [None]
